FAERS Safety Report 11585198 (Version 6)
Quarter: 2018Q4

REPORT INFORMATION
  Report Type: Spontaneous
  Country: US (occurrence: US)
  Receive Date: 20151001
  Receipt Date: 20181023
  Transmission Date: 20190204
  Serious: Yes (Life-Threatening, Hospitalization)
  Sender: FDA-Public Use
  Company Number: US-ACTELION-A-NJ2015-124670

PATIENT
  Age: 70 Year
  Sex: Female

DRUGS (2)
  1. OPSUMIT [Suspect]
     Active Substance: MACITENTAN
     Indication: PULMONARY ARTERIAL HYPERTENSION
     Dosage: 10 MG, UNK
     Route: 048
     Dates: start: 20150803, end: 20151018
  2. RIOCIGUAT. [Concomitant]
     Active Substance: RIOCIGUAT

REACTIONS (5)
  - Pulmonary oedema [Recovered/Resolved]
  - Chest pain [Recovered/Resolved]
  - Hypersomnia [Not Recovered/Not Resolved]
  - Dyspnoea [Recovered/Resolved]
  - Pleural effusion [Unknown]

NARRATIVE: CASE EVENT DATE: 20150914
